FAERS Safety Report 5771840-1 (Version None)
Quarter: 2008Q2

REPORT INFORMATION
  Report Type: 
  Country: None (occurrence: None)
  Receive Date: 20080613
  Receipt Date: 20080606
  Transmission Date: 20081010
  Serious: Yes (Hospitalization)
  Sender: FDA-Public Use
  Company Number: A0732746A

PATIENT
  Age: 77 Year
  Sex: Male
  Weight: 80 kg

DRUGS (16)
  1. COREG [Suspect]
     Route: 048
  2. INVESTIGATIONAL DRUG [Suspect]
     Indication: OSTEOARTHRITIS
     Dates: start: 20070601, end: 20071205
  3. HYDROCHLOROTHIAZIDE [Concomitant]
     Indication: HYPERTENSION
     Dosage: 25MG PER DAY
  4. ASPIRIN [Concomitant]
     Dosage: 81MG PER DAY
     Dates: start: 19900101
  5. FINASTERIDE [Concomitant]
     Dosage: 5MG PER DAY
     Route: 048
     Dates: start: 20060701
  6. VITAMIN CAP [Concomitant]
     Indication: SUPPLEMENTATION THERAPY
     Dosage: 1TAB PER DAY
     Route: 048
     Dates: start: 19770101
  7. ZINC [Concomitant]
     Indication: SUPPLEMENTATION THERAPY
     Dosage: 50MG PER DAY
     Route: 048
     Dates: start: 19770101
  8. VITAMIN A [Concomitant]
     Indication: SUPPLEMENTATION THERAPY
     Dosage: 8000MG PER DAY
     Route: 048
     Dates: start: 19770101
  9. ASCORBIC ACID [Concomitant]
     Indication: SUPPLEMENTATION THERAPY
     Dosage: 500IU TWICE PER DAY
     Route: 048
     Dates: start: 19770101
  10. VITAMIN E [Concomitant]
     Indication: SUPPLEMENTATION THERAPY
     Dosage: 500IU TWICE PER DAY
     Route: 048
     Dates: start: 19770101
  11. BISACODYL [Concomitant]
     Indication: CONSTIPATION
     Dosage: 5MG PER DAY
     Route: 048
     Dates: start: 20070601
  12. WARFARIN SODIUM [Concomitant]
     Indication: MYOCARDIAL INFARCTION
     Dosage: 5MG PER DAY
     Route: 048
     Dates: start: 20071205, end: 20080201
  13. PLAVIX [Concomitant]
     Indication: MYOCARDIAL INFARCTION
     Dosage: 75MG PER DAY
     Route: 048
     Dates: start: 20071205
  14. ZOCOR [Concomitant]
     Indication: LIPID METABOLISM DISORDER
     Dosage: 40MG PER DAY
     Route: 048
     Dates: start: 20071205
  15. OMEPRAZOLE [Concomitant]
     Dosage: 20MG PER DAY
     Route: 048
     Dates: end: 20080520
  16. LISINOPRIL [Concomitant]
     Route: 048

REACTIONS (11)
  - AORTIC VALVE CALCIFICATION [None]
  - BRADYCARDIA [None]
  - COLD SWEAT [None]
  - DILATATION ATRIAL [None]
  - DIZZINESS [None]
  - FEELING COLD [None]
  - HYPERHIDROSIS [None]
  - MITRAL VALVE INCOMPETENCE [None]
  - SYNCOPE [None]
  - TRICUSPID VALVE INCOMPETENCE [None]
  - VISION BLURRED [None]
